FAERS Safety Report 16361977 (Version 1)
Quarter: 2019Q2

REPORT INFORMATION
  Report Type: Spontaneous
  Country: FR (occurrence: FR)
  Receive Date: 20190528
  Receipt Date: 20190528
  Transmission Date: 20190711
  Serious: Yes (Disabling)
  Sender: FDA-Public Use
  Company Number: FR-MYLANLABS-2019M1049001

PATIENT
  Age: 32 Year
  Sex: Female
  Weight: 55 kg

DRUGS (7)
  1. DESFLURANE. [Suspect]
     Active Substance: DESFLURANE
     Indication: ANAESTHESIA
     Dosage: UNK
     Route: 055
     Dates: start: 20150611, end: 20150611
  2. HCG [Concomitant]
     Active Substance: GONADOTROPHIN, CHORIONIC
     Indication: OVULATION INDUCTION
     Dosage: 5000 INTERNATIONAL UNIT, TOTAL (5000 IU, SINGLE)
     Route: 003
     Dates: start: 20150609, end: 20150609
  3. MENOPUR [Concomitant]
     Active Substance: FOLLITROPIN\LUTEINIZING HORMONE
     Indication: CONTROLLED OVARIAN STIMULATION
     Dosage: 112.5 INTERNATIONAL UNIT, QD (112.5 IU, DAILY)
     Route: 058
     Dates: start: 20150529, end: 20150608
  4. FENTANYL. [Suspect]
     Active Substance: FENTANYL
     Indication: ANAESTHESIA
     Dosage: UNK UNK, TOTAL (UNK UNK, SINGLE)
     Route: 042
     Dates: start: 20150611, end: 20150611
  5. SYNAREL [Suspect]
     Active Substance: NAFARELIN ACETATE
     Indication: CONTROLLED OVARIAN STIMULATION
     Dosage: 1 DOSAGE FORM, QD (1 DF, 2X/DAY)
     Route: 055
     Dates: start: 20150513, end: 20150608
  6. SUFENTA [Concomitant]
     Active Substance: SUFENTANIL CITRATE
     Indication: ANAESTHESIA
     Dosage: UNK UNK, TOTAL (15 GAMMA, SINGLE)
     Route: 042
     Dates: start: 20150611, end: 20150611
  7. DIPRIVAN [Suspect]
     Active Substance: PROPOFOL
     Indication: ANAESTHESIA
     Dosage: UNK UNK, TOTAL (400 (UNIT NOT PROVIDED), SINGLE)
     Route: 042
     Dates: start: 20150611, end: 20150611

REACTIONS (2)
  - Ageusia [Recovered/Resolved with Sequelae]
  - Anosmia [Recovered/Resolved with Sequelae]

NARRATIVE: CASE EVENT DATE: 20150611
